FAERS Safety Report 9094957 (Version 1)
Quarter: 2013Q1

REPORT INFORMATION
  Report Type: Spontaneous
  Country: US (occurrence: US)
  Receive Date: 20130204
  Receipt Date: 20130204
  Transmission Date: 20140127
  Serious: Yes (Death, Hospitalization)
  Sender: FDA-Public Use
  Company Number: US-CELGENEUS-163-21880-13014919

PATIENT
  Age: 71 None
  Sex: Female

DRUGS (3)
  1. REVLIMID [Suspect]
     Indication: MYELODYSPLASTIC SYNDROME
     Dosage: 5 MILLIGRAM
     Route: 048
     Dates: start: 20130114, end: 20130116
  2. BLOOD PRESSURE MEDICATIONS [Concomitant]
     Indication: HYPERTENSION
     Route: 065
  3. CHOLESTEROL MEDICATIONS [Concomitant]
     Indication: BLOOD CHOLESTEROL
     Route: 065

REACTIONS (2)
  - Death [Fatal]
  - Malaise [Unknown]
